FAERS Safety Report 21564996 (Version 1)
Quarter: 2022Q4

REPORT INFORMATION
  Report Type: Spontaneous
  Country: US (occurrence: US)
  Receive Date: 20221108
  Receipt Date: 20221108
  Transmission Date: 20230113
  Serious: No
  Sender: FDA-Public Use
  Company Number: US-BRISTOL-MYERS SQUIBB COMPANY-2022-134177

PATIENT
  Age: 66 Year
  Sex: Female
  Weight: 58 kg

DRUGS (1)
  1. REVLIMID [Suspect]
     Active Substance: LENALIDOMIDE
     Indication: Diffuse large B-cell lymphoma
     Dosage: DOSE : 10 MG;     FREQ : DAILY
     Route: 048
     Dates: start: 20220520

REACTIONS (4)
  - Fatigue [Unknown]
  - Sleep disorder [Unknown]
  - Frustration tolerance decreased [Unknown]
  - Intentional product use issue [Unknown]
